FAERS Safety Report 17403654 (Version 1)
Quarter: 2020Q1

REPORT INFORMATION
  Report Type: Spontaneous
  Country: US (occurrence: US)
  Receive Date: 20200211
  Receipt Date: 20200211
  Transmission Date: 20200409
  Serious: No
  Sender: FDA-Public Use
  Company Number: US-PERRIGO-19US000151

PATIENT
  Age: 69 Year
  Sex: Female
  Weight: 39.91 kg

DRUGS (4)
  1. CETIRIZINE HYDROCHLORIDE. [Suspect]
     Active Substance: CETIRIZINE HYDROCHLORIDE
     Indication: URTICARIA
     Dosage: 10 MG, NIGHTLY
     Route: 048
     Dates: start: 20190105, end: 20190106
  2. CETIRIZINE HYDROCHLORIDE. [Suspect]
     Active Substance: CETIRIZINE HYDROCHLORIDE
     Indication: PRURITUS
  3. LORATADINE. [Concomitant]
     Active Substance: LORATADINE
     Indication: URTICARIA
     Dosage: 10 MG, SINGLE
     Route: 048
     Dates: start: 20190105, end: 20190105
  4. LORATADINE. [Concomitant]
     Active Substance: LORATADINE
     Indication: PRURITUS

REACTIONS (3)
  - Dizziness [Recovering/Resolving]
  - Off label use [Recovered/Resolved]
  - Fatigue [Not Recovered/Not Resolved]

NARRATIVE: CASE EVENT DATE: 20190105
